FAERS Safety Report 9263737 (Version 2)
Quarter: 2013Q3

REPORT INFORMATION
  Report Type: Report from Study
  Country: BR (occurrence: BR)
  Receive Date: 20130430
  Receipt Date: 20130702
  Transmission Date: 20140515
  Serious: Yes (Hospitalization, Other)
  Sender: FDA-Public Use
  Company Number: PHHY2013BR041426

PATIENT
  Age: 85 Year
  Sex: Female

DRUGS (3)
  1. DIOVAN AMLO FIX [Suspect]
     Indication: HYPERTENSION
     Dosage: 1 DF, (320MG VAL, 5MG AMLO), DAILY
     Route: 048
  2. ANTICOAGULANTS [Concomitant]
  3. ROSULIP [Concomitant]
     Indication: BLOOD CHOLESTEROL INCREASED
     Dosage: 10 MG,DAILY
     Route: 048

REACTIONS (4)
  - Fall [Recovering/Resolving]
  - Femur fracture [Recovering/Resolving]
  - Bone pain [Unknown]
  - Renal cyst [Recovering/Resolving]
